FAERS Safety Report 9198361 (Version 1)
Quarter: 2013Q1

REPORT INFORMATION
  Report Type: Spontaneous
  Country: US (occurrence: None)
  Receive Date: 20130327
  Receipt Date: 20130327
  Transmission Date: 20140127
  Serious: Yes (Other)
  Sender: FDA-Public Use
  Company Number: None

PATIENT
  Age: 24 Year
  Sex: Female
  Weight: 58.06 kg

DRUGS (2)
  1. ADDERALL [Suspect]
     Indication: ATTENTION DEFICIT/HYPERACTIVITY DISORDER
     Route: 048
     Dates: start: 20130315, end: 20130324
  2. ADDERALL [Suspect]
     Route: 048
     Dates: start: 20130315, end: 20130324

REACTIONS (11)
  - Feeling abnormal [None]
  - Product quality issue [None]
  - Headache [None]
  - Muscle spasms [None]
  - Depression [None]
  - Chest pain [None]
  - Poor peripheral circulation [None]
  - Muscle spasms [None]
  - Pain in extremity [None]
  - Dissociation [None]
  - Disturbance in attention [None]
